FAERS Safety Report 9120153 (Version 1)
Quarter: 2013Q1

REPORT INFORMATION
  Report Type: Spontaneous
  Country: US (occurrence: US)
  Receive Date: 20130226
  Receipt Date: 20130226
  Transmission Date: 20140127
  Serious: Yes (Other)
  Sender: FDA-Public Use
  Company Number: US-BRISTOL-MYERS SQUIBB COMPANY-17400433

PATIENT
  Age: 79 Year
  Sex: Female

DRUGS (1)
  1. ORENCIA FOR INJ [Suspect]
     Dosage: LAST DOSE ON DEC12
     Route: 042

REACTIONS (3)
  - Limb operation [Unknown]
  - Local swelling [Unknown]
  - Pain in extremity [Unknown]
